FAERS Safety Report 10542768 (Version 1)
Quarter: 2014Q4

REPORT INFORMATION
  Report Type: Spontaneous
  Country: US (occurrence: None)
  Receive Date: 20141010
  Receipt Date: 20141010
  Transmission Date: 20150529
  Serious: Yes (Other)
  Sender: FDA-Public Use
  Company Number: 163-POMAL-14074161

PATIENT
  Age: 73 Year
  Sex: Male
  Weight: 77.11 kg

DRUGS (6)
  1. GLUCOPHAGE(METFORMIN HYDROCHLORIDE) [Concomitant]
  2. CRESTOR(ROSUVASTATIN) [Concomitant]
  3. POMALYST [Suspect]
     Active Substance: POMALIDOMIDE
     Indication: PLASMA CELL MYELOMA
     Route: 048
     Dates: start: 201407
  4. AMARYL(GLIMEPIRIDE) [Concomitant]
  5. FLOMAX(TAMSULOSIN HYDROCHLORIDE) [Concomitant]
  6. NORCO(VICODIN) [Concomitant]

REACTIONS (2)
  - Generalised oedema [None]
  - Generalised erythema [None]

NARRATIVE: CASE EVENT DATE: 20140708
